FAERS Safety Report 9255248 (Version 1)
Quarter: 2013Q1

REPORT INFORMATION
  Report Type: Spontaneous
  Country: US (occurrence: None)
  Receive Date: 20121212
  Receipt Date: 20121212
  Transmission Date: 20140127
  Serious: No
  Sender: FDA-Public Use
  Company Number: 1208USA011209

PATIENT
  Age: 50 Year
  Sex: Female

DRUGS (8)
  1. VICTRELIS [Suspect]
     Indication: HEPATITIS C
     Route: 048
     Dates: start: 20120809
  2. RIBASPHERE [Suspect]
  3. PEGASYS [Suspect]
  4. FUROSEMIDE (FUROSEMIDE) [Concomitant]
  5. CLONAZEPAM (CLONAZEPAM) (CLONAZEPAM) [Concomitant]
  6. ASCORBIC ACID (ASCORBIC ACID) [Concomitant]
  7. VITAMINS (UNSPECIFIED) (VITAMINS (UNSPECIFIED)) [Concomitant]
  8. VITAMIN B COMPLEX (VITAMIN B COMPLEX) [Concomitant]

REACTIONS (1)
  - Fatigue [None]
